FAERS Safety Report 20939658 (Version 4)
Quarter: 2025Q4

REPORT INFORMATION
  Report Type: Spontaneous
  Country: JP (occurrence: JP)
  Receive Date: 20220609
  Receipt Date: 20251125
  Transmission Date: 20260117
  Serious: Yes (Other)
  Sender: SUNOVION
  Company Number: JP-SUNOVION-2022SMP002613

PATIENT
  Age: 81 Year
  Sex: Male

DRUGS (7)
  1. LATUDA [Suspect]
     Active Substance: LURASIDONE HYDROCHLORIDE
     Indication: Depressive symptom
     Dosage: 10 MG, QD
     Route: 048
  2. LATUDA [Suspect]
     Active Substance: LURASIDONE HYDROCHLORIDE
     Dosage: 20 MG, QD
     Route: 048
  3. ASENAPINE MALEATE [Concomitant]
     Active Substance: ASENAPINE MALEATE
     Indication: Bipolar disorder
     Dosage: UNK
     Route: 060
  4. INSULIN NOS [Concomitant]
     Active Substance: INSULIN NOS
     Indication: Diabetes mellitus
     Dosage: UNK
     Route: 058
  5. UNSPECIFIED INGREDIENT [Concomitant]
     Active Substance: UNSPECIFIED INGREDIENT
     Indication: Diabetes mellitus
     Dosage: UNK
     Route: 048
  6. LAMOTRIGINE [Concomitant]
     Active Substance: LAMOTRIGINE
     Indication: Bipolar disorder
     Dosage: 200 MG, QD
  7. AMINO ACIDS, SOURCE UNSPECIFIED [Concomitant]
     Active Substance: AMINO ACIDS, SOURCE UNSPECIFIED
     Dosage: 1240 ML, QD, ROUTE OF ADMINISTRATION: ENTERAL ADMINISTRATION

REACTIONS (3)
  - Hyperglycaemic hyperosmolar nonketotic syndrome [Recovered/Resolved]
  - Prescribed underdose [Unknown]
  - Prescribed underdose [Unknown]
